FAERS Safety Report 5233463-2 (Version None)
Quarter: 2007Q1

REPORT INFORMATION
  Report Type: 
  Country: None (occurrence: None)
  Receive Date: 20061208
  Receipt Date: 20060308
  Transmission Date: 20070707
  Serious: Yes (Other)
  Sender: FDA-Public Use
  Company Number: 2006UW03938

PATIENT
  Age: 74 Year
  Sex: Female
  Weight: 66.451 kg

DRUGS (4)
  1. CRESTOR [Suspect]
     Indication: BLOOD CHOLESTEROL INCREASED
     Dosage: 10 MG PO
     Route: 048
     Dates: start: 20060302
  2. GEMFIBROZIL [Concomitant]
  3. DIOVAN [Concomitant]
  4. LEVOXYL [Concomitant]

REACTIONS (1)
  - WEIGHT INCREASED [None]
